FAERS Safety Report 7010825 (Version 2)
Quarter: 2014Q1

REPORT INFORMATION
  Report Type: Spontaneous
  Country: US (occurrence: None)
  Receive Date: 20090526
  Receipt Date: 20140127
  Transmission Date: 20141002
  Serious: Yes (Other)
  Sender: FDA-Public Use
  Company Number: 2009S1004062

PATIENT
  Age: 69 Year
  Sex: Male
  Weight: 86.18 kg

DRUGS (4)
  1. FLEET [Suspect]
     Dosage: PO
     Route: 048
  2. PROBENECID(PROBENECID) [Concomitant]
  3. ZETIA(EZETIMIBE) [Concomitant]
  4. TRILEPTAL(OXCARBAZEPINE) [Concomitant]

REACTIONS (1)
  - Renal failure chronic [None]
